FAERS Safety Report 5480928-4 (Version None)
Quarter: 2007Q4

REPORT INFORMATION
  Report Type: 
  Country: None (occurrence: None)
  Receive Date: 20071004
  Receipt Date: 20070919
  Transmission Date: 20080405
  Serious: Yes (Hospitalization)
  Sender: FDA-Public Use
  Company Number: 8026073

PATIENT
  Age: 13 Month
  Sex: Male
  Weight: 7.9 kg

DRUGS (2)
  1. KEPPRA [Suspect]
     Indication: EPILEPSY
     Dosage: 120 MG 2/D PO
     Route: 048
  2. KEPPRA [Suspect]
     Indication: EPILEPSY
     Dosage: 1200 MG ONCE PO
     Route: 048

REACTIONS (1)
  - ACCIDENTAL OVERDOSE [None]
